FAERS Safety Report 13075612 (Version 2)
Quarter: 2017Q2

REPORT INFORMATION
  Report Type: Spontaneous
  Country: US (occurrence: US)
  Receive Date: 20161230
  Receipt Date: 20170426
  Transmission Date: 20170830
  Serious: No
  Sender: FDA-Public Use
  Company Number: US-TEVA-718747ACC

PATIENT
  Age: 52 Year
  Sex: Female
  Weight: 59.93 kg

DRUGS (1)
  1. PARAGARD T 380A [Suspect]
     Active Substance: COPPER
     Indication: CONTRACEPTION
     Dates: start: 200606, end: 20160826

REACTIONS (3)
  - Device expulsion [Recovered/Resolved]
  - Device breakage [Recovered/Resolved]
  - Intentional device use issue [Recovered/Resolved]

NARRATIVE: CASE EVENT DATE: 20160826
